FAERS Safety Report 8308212-1 (Version None)
Quarter: 2012Q2

REPORT INFORMATION
  Report Type: 
  Country: None (occurrence: None)
  Receive Date: 20120424
  Receipt Date: 20120413
  Transmission Date: 20120825
  Serious: Yes (Other)
  Sender: FDA-Public Use
  Company Number: DE-JNJFOC-20120409840

PATIENT
  Sex: Female
  Weight: 118 kg

DRUGS (15)
  1. TRAMADOL HCL [Concomitant]
     Indication: FIBROMYALGIA
     Route: 065
  2. ANALGESICS [Concomitant]
     Indication: PRODUCT USED FOR UNKNOWN INDICATION
     Route: 065
  3. HYDROMORPHONE HCL [Concomitant]
     Indication: DIABETIC NEUROPATHY
     Route: 065
  4. HYDROMORPHONE HCL [Concomitant]
     Indication: FIBROMYALGIA
     Route: 065
  5. METAMIZOLE [Concomitant]
     Indication: FIBROMYALGIA
     Route: 065
  6. METAMIZOLE [Concomitant]
     Indication: DIABETIC NEUROPATHY
     Route: 065
  7. TAPENTADOL HYDROCHLORIDE [Suspect]
     Indication: DIABETIC NEUROPATHY
     Route: 065
     Dates: start: 20111203, end: 20120301
  8. OPIPRAMOL [Concomitant]
     Indication: DEPRESSION
     Route: 065
  9. TRAMADOL HCL [Concomitant]
     Indication: DIABETIC NEUROPATHY
     Route: 065
  10. TAPENTADOL HYDROCHLORIDE [Suspect]
     Indication: FIBROMYALGIA
     Route: 065
     Dates: start: 20111203, end: 20120301
  11. TAPENTADOL HYDROCHLORIDE [Suspect]
     Indication: BACK PAIN
     Route: 065
     Dates: start: 20111203, end: 20120301
  12. HYDROMORPHONE HCL [Concomitant]
     Indication: BACK PAIN
     Route: 065
  13. TRAMADOL HCL [Concomitant]
     Indication: BACK PAIN
     Route: 065
  14. METAMIZOLE [Concomitant]
     Indication: BACK PAIN
     Route: 065
  15. LAXATIVES [Concomitant]
     Indication: PRODUCT USED FOR UNKNOWN INDICATION
     Route: 065

REACTIONS (2)
  - MYOCLONUS [None]
  - TREMOR [None]
